FAERS Safety Report 6262699-7 (Version None)
Quarter: 2009Q3

REPORT INFORMATION
  Report Type: 
  Country: None (occurrence: None)
  Receive Date: 20090708
  Receipt Date: 20090623
  Transmission Date: 20100115
  Serious: Yes (Hospitalization)
  Sender: FDA-Public Use
  Company Number: 2009-199424-NL

PATIENT
  Age: 23 Year
  Sex: Female
  Weight: 66.7 kg

DRUGS (3)
  1. IMPLANON [Suspect]
     Indication: CONTRACEPTION
     Dosage: NI SUBDERMAL, TRAINED PHYSICIAN
     Route: 059
     Dates: start: 20070816
  2. DILANTIN [Concomitant]
  3. KEPPRA [Concomitant]

REACTIONS (4)
  - ABORTION INDUCED [None]
  - CONVULSION [None]
  - PREGNANCY [None]
  - PREGNANCY WITH IMPLANT CONTRACEPTIVE [None]
